FAERS Safety Report 9068902 (Version 3)
Quarter: 2013Q4

REPORT INFORMATION
  Report Type: Report from Study
  Country: US (occurrence: US)
  Receive Date: 20130215
  Receipt Date: 20131010
  Transmission Date: 20140711
  Serious: Yes (Hospitalization)
  Sender: FDA-Public Use
  Company Number: US-ELI_LILLY_AND_COMPANY-US201205010140

PATIENT
  Age: 76 Year
  Sex: Female

DRUGS (40)
  1. TERIPARATIDE [Suspect]
     Indication: OSTEOPOROSIS
     Dosage: 20 UG, QD
     Dates: start: 20120512
  2. TERIPARATIDE [Suspect]
     Dosage: 20 UG, QD
     Route: 065
  3. TERIPARATIDE [Suspect]
     Dosage: 20 UG, QD
  4. TERIPARATIDE [Suspect]
     Dosage: 20 UG, QD
  5. TERIPARATIDE [Suspect]
     Dosage: 20 UG, QD
  6. TERIPARATIDE [Suspect]
     Dosage: 20 UG, QD
     Dates: end: 201307
  7. VITAMIN A [Concomitant]
  8. ZINC [Concomitant]
  9. BYSTOLIC [Concomitant]
     Indication: BLOOD PRESSURE
  10. PROAIR [Concomitant]
  11. ALBUTEROL SULFATE [Concomitant]
  12. SPIRIVA HANDIHALER [Concomitant]
  13. IMDUR [Concomitant]
  14. MULTAQ [Concomitant]
     Dosage: UNK, QD
  15. XARELTO [Concomitant]
     Dosage: 15 MG, QOD
  16. CARVEDILOL [Concomitant]
     Dosage: 12.5 MG, BID
  17. SIMVASTATINE [Concomitant]
     Dosage: 10 MG, QD
  18. AZOPT [Concomitant]
     Dosage: 1 %, TID
  19. ALPHAGAN [Concomitant]
     Dosage: 0.5 %, TID
  20. CYMBALTA [Concomitant]
  21. TRICOR [Concomitant]
     Dosage: 145 MG, EACH EVENING
  22. PROTONIX [Concomitant]
  23. SUCRAFATE [Concomitant]
  24. AMBIEN [Concomitant]
  25. ZOFRAN [Concomitant]
  26. LIDODERM [Concomitant]
  27. FLEXERIL [Concomitant]
  28. LOMOTIL [Concomitant]
  29. OXYGEN [Concomitant]
  30. OSTEO BI-FLEX [Concomitant]
  31. GUAIFENESIN [Concomitant]
  32. KETOTIFEN [Concomitant]
  33. BABY ASPIRIN [Concomitant]
  34. VITAMIN B COMPLEX [Concomitant]
  35. CARBONYL IRON [Concomitant]
  36. VITAMIN C [Concomitant]
  37. VITAMIN D3 [Concomitant]
  38. VITAMIN E [Concomitant]
  39. STOOL SOFTENER [Concomitant]
  40. BIOTIN [Concomitant]

REACTIONS (32)
  - Lung infection [Unknown]
  - Palpitations [Unknown]
  - Blood pressure fluctuation [Unknown]
  - Heart rate irregular [Unknown]
  - Blood pressure decreased [Unknown]
  - Fall [Unknown]
  - Upper limb fracture [Unknown]
  - Benign bone neoplasm [Unknown]
  - Clostridium difficile infection [Unknown]
  - Sinusitis [Not Recovered/Not Resolved]
  - Bronchitis [Not Recovered/Not Resolved]
  - Blood pressure decreased [Unknown]
  - Blood glucose increased [Not Recovered/Not Resolved]
  - Somnolence [Unknown]
  - Head discomfort [Unknown]
  - Abdominal discomfort [Unknown]
  - Nasal mucosal discolouration [Recovered/Resolved]
  - Nasal mucosal discolouration [Unknown]
  - Regurgitation [Unknown]
  - Feeling abnormal [Unknown]
  - Fear [Unknown]
  - Blood pressure increased [Unknown]
  - Dyspnoea [Not Recovered/Not Resolved]
  - Dizziness [Not Recovered/Not Resolved]
  - Diarrhoea [Recovered/Resolved]
  - Asthenia [Unknown]
  - Injection site bruising [Unknown]
  - Nausea [Recovered/Resolved]
  - Blood magnesium decreased [Unknown]
  - Immune system disorder [Unknown]
  - Strabismus [Unknown]
  - Sinusitis [Unknown]
